FAERS Safety Report 23488286 (Version 3)
Quarter: 2024Q3

REPORT INFORMATION
  Report Type: Spontaneous
  Country: US (occurrence: US)
  Receive Date: 20240206
  Receipt Date: 20240708
  Transmission Date: 20241016
  Serious: No
  Sender: SANOFI AVENTIS
  Company Number: US-SA-SAC20240131000909

PATIENT
  Age: 28 Year
  Sex: Female

DRUGS (1)
  1. DUPIXENT [Suspect]
     Active Substance: DUPILUMAB
     Indication: Asthma
     Dosage: 300 MG, QOW
     Route: 058

REACTIONS (7)
  - Decreased activity [Unknown]
  - Dyspnoea [Unknown]
  - Headache [Unknown]
  - Pruritus [Unknown]
  - Injection site swelling [Unknown]
  - Injection site pruritus [Unknown]
  - Product dose omission in error [Unknown]
